FAERS Safety Report 6109797 (Version 3)
Quarter: 2013Q2

REPORT INFORMATION
  Report Type: Spontaneous
  Country: US (occurrence: US)
  Receive Date: 20060622
  Receipt Date: 20130423
  Transmission Date: 20140414
  Serious: Yes (Death)
  Sender: FDA-Public Use
  Company Number: US-JNJFOC-20060103249

PATIENT
  Age: 48 Year
  Sex: Male
  Weight: 80.29 kg

DRUGS (11)
  1. DURAGESIC [Suspect]
     Indication: PAIN
     Route: 062
     Dates: start: 20040226
  2. DURAGESIC [Suspect]
     Indication: PAIN
     Route: 062
     Dates: start: 20030916
  3. DURAGESIC [Suspect]
     Indication: PAIN
     Route: 062
     Dates: start: 20030819, end: 20030916
  4. DURAGESIC [Suspect]
     Indication: PAIN
     Route: 062
     Dates: start: 20020828, end: 20030131
  5. DURAGESIC [Suspect]
     Indication: PAIN
     Route: 062
     Dates: start: 20020605, end: 20020828
  6. HYDROCODONE [Interacting]
     Indication: PAIN
     Dosage: 10 MG HYDROCODONE/325 MG ACETAMINOPHEN, 1 AND 1/2 TABLETS, 1 IN 6 HOURS
     Route: 048
  7. MYLAN FENTANYL TRANSDERMAL SYSTEM [Suspect]
     Indication: PRODUCT USED FOR UNKNOWN INDICATION
     Route: 062
  8. FLEXERIL [Concomitant]
  9. DIPHEN [Concomitant]
  10. VI-Q-TUSS [Concomitant]
  11. ZOLOFT [Concomitant]

REACTIONS (8)
  - Toxicity to various agents [Fatal]
  - Overdose [Not Recovered/Not Resolved]
  - Device leakage [Not Recovered/Not Resolved]
  - Drug interaction [Fatal]
  - Hypertension [Not Recovered/Not Resolved]
  - Withdrawal syndrome [Not Recovered/Not Resolved]
  - Application site rash [Not Recovered/Not Resolved]
  - Application site pruritus [Not Recovered/Not Resolved]
